FAERS Safety Report 5448251-1 (Version None)
Quarter: 2007Q3

REPORT INFORMATION
  Report Type: 
  Country: None (occurrence: None)
  Receive Date: 20070911
  Receipt Date: 20070903
  Transmission Date: 20080115
  Serious: Yes (Hospitalization)
  Sender: FDA-Public Use
  Company Number: PHBS2007JP13328

PATIENT
  Age: 63 Year
  Sex: Male
  Weight: 72 kg

DRUGS (10)
  1. DIOVAN [Suspect]
     Indication: HYPERTENSION
     Dosage: 80 MG/DAY
     Route: 048
     Dates: start: 20070508
  2. ASPIRIN [Concomitant]
     Indication: CEREBRAL INFARCTION
     Dosage: 100 MG, UNK
     Route: 048
     Dates: start: 20070502
  3. FAMOTIDINE [Concomitant]
     Indication: GASTRITIS
     Dosage: 40 MG, UNK
     Route: 048
     Dates: start: 20070502, end: 20070627
  4. TAMSULOSIN HCL [Concomitant]
     Indication: NEUROGENIC BLADDER
     Dosage: 0.2 MG, UNK
     Route: 048
     Dates: start: 20070502
  5. APOLAKETE [Concomitant]
     Dosage: 3 DF, UNK
     Route: 048
     Dates: end: 20070627
  6. BLADDERON [Concomitant]
     Indication: NEUROGENIC BLADDER
     Dosage: 600 MG, UNK
     Route: 048
     Dates: start: 20070502
  7. MELBIN [Concomitant]
     Indication: DIABETES MELLITUS
     Dosage: 500 MG, UNK
     Route: 048
     Dates: start: 20070502
  8. MAGNESIUM OXIDE [Concomitant]
     Indication: CONSTIPATION
     Dosage: 1 UNK, UNK
     Dates: start: 20070502
  9. PREDNISOLONE [Concomitant]
     Dosage: 30 MG, UNK
     Route: 048
     Dates: start: 20070510, end: 20070524
  10. TAMSULOSIN HCL [Concomitant]
     Dosage: 0.2 MG, UNK
     Route: 048
     Dates: end: 20070627

REACTIONS (11)
  - ALANINE AMINOTRANSFERASE INCREASED [None]
  - ASPARTATE AMINOTRANSFERASE INCREASED [None]
  - BLOOD ALKALINE PHOSPHATASE INCREASED [None]
  - BLOOD BILIRUBIN INCREASED [None]
  - BLOOD LACTATE DEHYDROGENASE INCREASED [None]
  - HEPATIC FUNCTION ABNORMAL [None]
  - HEPATITIS ACUTE [None]
  - JAUNDICE CHOLESTATIC [None]
  - LEUKOCYTOCLASTIC VASCULITIS [None]
  - PRURITUS GENERALISED [None]
  - URTICARIA [None]
